FAERS Safety Report 8643596 (Version 2)
Quarter: 2014Q1

REPORT INFORMATION
  Report Type: Report from Study
  Country: DE (occurrence: DE)
  Receive Date: 20120629
  Receipt Date: 20140124
  Transmission Date: 20141002
  Serious: Yes (Hospitalization, Other)
  Sender: FDA-Public Use
  Company Number: DE-GILEAD-2012-0057241

PATIENT
  Age: 86 Year
  Sex: Male
  Weight: 88 kg

DRUGS (2)
  1. PLACEBO [Suspect]
     Indication: ARRHYTHMIA PROPHYLAXIS
     Dosage: UNK
     Route: 048
     Dates: start: 20120301, end: 20120601
  2. DIOVAN [Concomitant]

REACTIONS (1)
  - Atrial fibrillation [Recovered/Resolved]
